FAERS Safety Report 7151191-3 (Version None)
Quarter: 2010Q4

REPORT INFORMATION
  Report Type: 
  Country: None (occurrence: None)
  Receive Date: 20101124
  Receipt Date: 20101111
  Transmission Date: 20110411
  Serious: No
  Sender: FDA-Public Use
  Company Number: 021991

PATIENT
  Sex: Female
  Weight: 47.6 kg

DRUGS (4)
  1. KEPPRA [Suspect]
     Dosage: (500 MG BID ORAL) (750 MG BID ORAL)
     Route: 048
     Dates: start: 20100501, end: 20100519
  2. KEPPRA [Suspect]
     Dosage: (500 MG BID ORAL) (750 MG BID ORAL)
     Route: 048
     Dates: start: 20100520
  3. AMBIEN [Concomitant]
  4. DARVOCET [Concomitant]

REACTIONS (2)
  - CONVULSION [None]
  - TREMOR [None]
